FAERS Safety Report 13534045 (Version 1)
Quarter: 2017Q2

REPORT INFORMATION
  Report Type: Spontaneous
  Country: US (occurrence: US)
  Receive Date: 20170510
  Receipt Date: 20170510
  Transmission Date: 20170830
  Serious: No
  Sender: FDA-Public Use
  Company Number: US-SA-2017SA075795

PATIENT
  Age: 88 Year
  Sex: Female

DRUGS (4)
  1. XYZAL ALLERGY 24HR [Suspect]
     Active Substance: LEVOCETIRIZINE DIHYDROCHLORIDE
     Indication: BURNING SENSATION
     Dosage: 2.5 TO 5  MG, START DATE FEW DAYS AGO
     Route: 065
  2. XYZAL ALLERGY 24HR [Suspect]
     Active Substance: LEVOCETIRIZINE DIHYDROCHLORIDE
     Indication: PRURITUS
     Route: 065
  3. XYZAL ALLERGY 24HR [Suspect]
     Active Substance: LEVOCETIRIZINE DIHYDROCHLORIDE
     Indication: BURNING SENSATION
     Route: 065
  4. XYZAL ALLERGY 24HR [Suspect]
     Active Substance: LEVOCETIRIZINE DIHYDROCHLORIDE
     Indication: PRURITUS
     Dosage: 2.5 TO 5  MG, START DATE FEW DAYS AGO
     Route: 065

REACTIONS (5)
  - Dizziness [Unknown]
  - Somnolence [Unknown]
  - Product use issue [Unknown]
  - Vertigo [Unknown]
  - Underdose [Unknown]
